FAERS Safety Report 11441025 (Version 1)
Quarter: 2015Q3

REPORT INFORMATION
  Report Type: Spontaneous
  Country: US (occurrence: None)
  Receive Date: 20150831
  Receipt Date: 20150831
  Transmission Date: 20151125
  Serious: Yes (Other)
  Sender: FDA-Public Use
  Company Number: None

PATIENT
  Age: 72 Year
  Sex: Female
  Weight: 52.16 kg

DRUGS (11)
  1. LEVOTHYROXINE. [Concomitant]
     Active Substance: LEVOTHYROXINE
  2. NEURONTIN [Concomitant]
     Active Substance: GABAPENTIN
  3. MORPHINE SULFATE. [Suspect]
     Active Substance: MORPHINE SULFATE
     Indication: POST PROCEDURAL COMPLICATION
     Route: 048
     Dates: start: 20150730, end: 20150829
  4. LIPITOR [Concomitant]
     Active Substance: ATORVASTATIN CALCIUM
  5. MULTIVITAMINS [Concomitant]
     Active Substance: VITAMINS
  6. MORPHINE SULFATE. [Suspect]
     Active Substance: MORPHINE SULFATE
     Indication: NERVE INJURY
     Route: 048
     Dates: start: 20150730, end: 20150829
  7. MORPHINE SULFATE. [Suspect]
     Active Substance: MORPHINE SULFATE
     Indication: FACIAL NEURALGIA
     Route: 048
     Dates: start: 20150730, end: 20150829
  8. WELLBUTRIN [Concomitant]
     Active Substance: BUPROPION HYDROCHLORIDE
  9. PRINIVIL [Concomitant]
     Active Substance: LISINOPRIL
  10. OGEN [Concomitant]
     Active Substance: ESTROPIPATE
  11. LUNESTA [Concomitant]
     Active Substance: ESZOPICLONE

REACTIONS (2)
  - Drug ineffective [None]
  - Feeling abnormal [None]

NARRATIVE: CASE EVENT DATE: 20150828
